FAERS Safety Report 9280477 (Version 1)
Quarter: 2013Q2

REPORT INFORMATION
  Report Type: Spontaneous
  Country: JP (occurrence: JP)
  Receive Date: 20130509
  Receipt Date: 20130509
  Transmission Date: 20140414
  Serious: Yes (Hospitalization, Other)
  Sender: FDA-Public Use
  Company Number: JP-COVIDIEN/TYCO HEALTHCARE/MALLINCKRODT-T201301829

PATIENT
  Age: 50 Year
  Sex: Female

DRUGS (1)
  1. OPTIRAY [Suspect]
     Indication: COMPUTERISED TOMOGRAM
     Dosage: UNK,  SINGLE
     Route: 042
     Dates: start: 20130417, end: 20130417

REACTIONS (2)
  - Shock [Recovered/Resolved]
  - Pharyngeal oedema [Recovered/Resolved]
